FAERS Safety Report 4863979-X (Version None)
Quarter: 2005Q4

REPORT INFORMATION
  Report Type: 
  Country: None (occurrence: None)
  Receive Date: 20051222
  Receipt Date: 20051201
  Transmission Date: 20060501
  Serious: Yes (Death)
  Sender: FDA-Public Use
  Company Number: AT-BRISTOL-MYERS SQUIBB COMPANY-13203047

PATIENT
  Age: 61 Year
  Sex: Male
  Weight: 82 kg

DRUGS (2)
  1. MAXIPIME [Suspect]
     Indication: RESPIRATORY TRACT INFECTION
     Dates: start: 20031220, end: 20031226
  2. NETILMICIN SULFATE [Concomitant]

REACTIONS (1)
  - MULTI-ORGAN FAILURE [None]
